FAERS Safety Report 7747057-8 (Version None)
Quarter: 2011Q3

REPORT INFORMATION
  Report Type: 
  Country: None (occurrence: None)
  Receive Date: 20110913
  Receipt Date: 20110909
  Transmission Date: 20111222
  Serious: Yes (Death)
  Sender: FDA-Public Use
  Company Number: PHHY2011CA69827

PATIENT
  Sex: Male

DRUGS (32)
  1. VALPROIC ACID [Concomitant]
     Dosage: 250 MG=5ML
  2. DIVALPROEX SODIUM [Concomitant]
  3. PIPERACILLIN AND TAZOBACTAM [Concomitant]
     Dosage: 2.25 =11.6 ML
     Route: 042
  4. HEPARIN [Concomitant]
     Dosage: 1000 UNITS=500ML Q2200H
  5. RANITIDINE [Concomitant]
     Dosage: 50 MG=2ML Q8H
  6. POTASSIUM PROTOCOL [Concomitant]
     Dosage: 1 EA UD ORAL OR IV
  7. VASOPRESSIN INJECTION [Concomitant]
     Dosage: 20 UNITS=1 ML IN 100 ML DSW
  8. SYMBICORT MISC [Concomitant]
     Dosage: 2 EAS
  9. METRONIDAZOLE IN NS [Concomitant]
     Dosage: 500 MG=100 ML QSH
     Route: 042
  10. MIDAZOLAM HCL [Concomitant]
     Dosage: 1-2 MG= 0.2 - 0.4 ML Q1H PRN
     Route: 042
  11. HEPARIN [Concomitant]
     Dosage: 5000 UNITS=0.5 ML Q12H
  12. ALBUTEROL [Concomitant]
     Dosage: 4-8 PUFFS Q1H
  13. IPRATROPIUM BROMIDE [Concomitant]
     Dosage: 4-6 PUFFS EVERY 4 HOURS
  14. SODIUM BICARBONATE [Concomitant]
     Dosage: 100MEQ= 100 ML PRN
     Route: 042
  15. ALBUTEROL [Concomitant]
     Dosage: 4-8 PUFFS SHAKE WELL AND GIVE EVERY 4 HOURS
  16. CHLORHEXIDINE GLUCONATE MOUTHWASH [Concomitant]
     Dosage: 15 ML, TO BE BRUSHED ON ALL SURFACES OF PATIENT'S MOUTH AND TEETH WHILE INTUBATED
  17. DIMENHYDRINATE [Concomitant]
     Indication: VOMITING
  18. RAMIPRIL CAP [Concomitant]
     Dosage: 2.5 MG=1 CAP
     Route: 048
  19. CIPROFLOXACIN IN D5W [Concomitant]
     Dosage: 400 MG=200ML
     Route: 042
  20. PROPOFOL [Concomitant]
     Dosage: 1000 MG=100 ML
  21. DIMENHYDRINATE [Concomitant]
     Indication: NAUSEA
     Dosage: 25 MG=0.5 ML PRN
     Route: 042
  22. VALPROATE SODIUM [Concomitant]
     Dosage: 250 MG, BID
  23. CISATRACURIUM INJ [Concomitant]
     Dosage: 40 MG=20 ML
  24. CLOZAPINE [Suspect]
     Indication: SCHIZOPHRENIA
     Dosage: 400-500 MG
     Dates: start: 20030226
  25. MAGNESIUM PROTOCOL [Concomitant]
     Dosage: 1 EA UD ORAL OR IV
  26. AMLODIPINE TAB [Concomitant]
     Dosage: 5 MG=1 TAB DAILY
     Route: 048
  27. METOPROLOL TAB [Concomitant]
     Dosage: 50 MG=1 TAB
     Route: 048
  28. NOREPINEPHRINE BITARTRATE [Concomitant]
     Dosage: 4 MG=4 ML
  29. IPRATROPIUM BROMIDE [Concomitant]
     Dosage: 4-8PUFFS Q1H PRN
  30. DOPAMINE HCL [Concomitant]
     Dosage: 200 MG=250 ML
  31. PANTOPRAZOLE SODIUM INJ [Concomitant]
     Dosage: 40 MG=10 ML
     Route: 042
  32. FENTANYL CITRATE [Concomitant]
     Dosage: 25-50 MCG=0.5- 1ML EVERY 30 MIN PRN
     Route: 042

REACTIONS (1)
  - INTESTINAL ISCHAEMIA [None]
